FAERS Safety Report 25889786 (Version 1)
Quarter: 2025Q4

REPORT INFORMATION
  Report Type: Other
  Country: IN (occurrence: IN)
  Receive Date: 20251007
  Receipt Date: 20251007
  Transmission Date: 20260118
  Serious: Yes (Other)
  Sender: ZHEJIANG JINGXIN PHARMACEUTICAL
  Company Number: IN-Zhejiang Jingxin Pharmaceutical Co., Ltd-2186080

PATIENT
  Age: 9 Year
  Sex: Female

DRUGS (5)
  1. LEVETIRACETAM [Suspect]
     Active Substance: LEVETIRACETAM
     Indication: Product used for unknown indication
  2. ISONIAZID [Concomitant]
     Active Substance: ISONIAZID
  3. RIFAMPIN [Concomitant]
     Active Substance: RIFAMPIN
  4. ETHAMBUTOL [Concomitant]
     Active Substance: ETHAMBUTOL HYDROCHLORIDE
  5. PYRAZINAMIDE [Concomitant]
     Active Substance: PYRAZINAMIDE

REACTIONS (1)
  - Pulmonary toxicity [Recovering/Resolving]
